FAERS Safety Report 20820183 (Version 1)
Quarter: 2022Q2

REPORT INFORMATION
  Report Type: Spontaneous
  Country: US (occurrence: US)
  Receive Date: 20220512
  Receipt Date: 20220512
  Transmission Date: 20220720
  Serious: Yes (Other)
  Sender: FDA-Public Use
  Company Number: US-PURDUE-USA-2022-0293637

PATIENT
  Age: 51 Year
  Sex: Female

DRUGS (9)
  1. DOCUSATE SODIUM\SENNOSIDES [Suspect]
     Active Substance: DOCUSATE SODIUM\SENNOSIDES
     Indication: Constipation
     Dosage: 2 TABLET, BID
     Route: 048
     Dates: start: 20220508
  2. DOCUSATE SODIUM\SENNOSIDES [Suspect]
     Active Substance: DOCUSATE SODIUM\SENNOSIDES
     Dosage: 4 TABLET, UNK
     Route: 048
     Dates: start: 20220509
  3. MIRALAX [Suspect]
     Active Substance: POLYETHYLENE GLYCOL 3350
     Indication: Product used for unknown indication
     Dosage: UNKNOWN
     Route: 065
  4. NEXIUM [Concomitant]
     Active Substance: ESOMEPRAZOLE MAGNESIUM
     Indication: Product used for unknown indication
     Dosage: UNK
     Route: 065
  5. MAGNESIUM [Concomitant]
     Active Substance: MAGNESIUM
     Indication: Product used for unknown indication
     Dosage: UNK
     Route: 065
  6. VITAMIN D                          /00107901/ [Concomitant]
     Indication: Product used for unknown indication
     Dosage: 2000 IU, UNK
     Route: 065
  7. ESTROGENS [Concomitant]
     Active Substance: ESTROGENS
     Indication: Hormone replacement therapy
     Dosage: UNK
     Route: 065
  8. CERAZETTE                          /00754001/ [Concomitant]
     Indication: Hormone replacement therapy
     Dosage: UNK
     Route: 065
  9. NAUDICELLE                         /01096001/ [Concomitant]
     Indication: Vitamin supplementation
     Dosage: 3-6 CAPS DAILY
     Route: 048

REACTIONS (4)
  - Optic neuritis [Unknown]
  - Headache [Not Recovered/Not Resolved]
  - Muscle spasms [Unknown]
  - Drug ineffective [Not Recovered/Not Resolved]

NARRATIVE: CASE EVENT DATE: 20220508
